FAERS Safety Report 8062723-5 (Version None)
Quarter: 2012Q1

REPORT INFORMATION
  Report Type: 
  Country: None (occurrence: None)
  Receive Date: 20120118
  Receipt Date: 20120111
  Transmission Date: 20120608
  Serious: Yes (Hospitalization)
  Sender: FDA-Public Use
  Company Number: 2011SP045027

PATIENT
  Age: 30 Year
  Sex: Female
  Weight: 81.6475 kg

DRUGS (3)
  1. SERTRALINE HYDROCHLORIDE [Concomitant]
  2. NUVARING [Suspect]
     Indication: CONTRACEPTION
     Dates: start: 20070501, end: 20070923
  3. ZANTAC [Concomitant]

REACTIONS (13)
  - BACK PAIN [None]
  - SINUS TACHYCARDIA [None]
  - LEFT ATRIAL DILATATION [None]
  - PLEURAL EFFUSION [None]
  - HYPERCOAGULATION [None]
  - METRORRHAGIA [None]
  - OESOPHAGEAL ULCER [None]
  - GASTRIC POLYPS [None]
  - GASTROOESOPHAGEAL REFLUX DISEASE [None]
  - EROSIVE OESOPHAGITIS [None]
  - PULMONARY EMBOLISM [None]
  - ATELECTASIS [None]
  - MUSCLE SPASMS [None]
